FAERS Safety Report 14595746 (Version 1)
Quarter: 2018Q1

REPORT INFORMATION
  Report Type: Spontaneous
  Country: US (occurrence: US)
  Receive Date: 20180303
  Receipt Date: 20180303
  Transmission Date: 20180509
  Serious: No
  Sender: FDA-Public Use
  Company Number: PHEH2018US007418

PATIENT
  Sex: Male

DRUGS (1)
  1. COSENTYX [Suspect]
     Active Substance: SECUKINUMAB
     Indication: PRODUCT USED FOR UNKNOWN INDICATION
     Dosage: 150 MG/ML, QMO (T1X MONTHLY)
     Route: 065

REACTIONS (4)
  - Throat tightness [Unknown]
  - Sneezing [Unknown]
  - Malaise [Unknown]
  - Rhinorrhoea [Unknown]
